FAERS Safety Report 11200302 (Version 1)
Quarter: 2015Q2

REPORT INFORMATION
  Report Type: Spontaneous
  Country: TR (occurrence: TR)
  Receive Date: 20150618
  Receipt Date: 20150618
  Transmission Date: 20150821
  Serious: Yes (Death)
  Sender: FDA-Public Use
  Company Number: TR-ASTELLAS-2015US021192

PATIENT
  Age: 32 Year
  Sex: Female

DRUGS (3)
  1. MERONEM [Concomitant]
     Active Substance: MEROPENEM
     Indication: PRODUCT USED FOR UNKNOWN INDICATION
     Dosage: UNK UNK, UNKNOWN FREQ.
     Route: 065
     Dates: start: 20150525, end: 20150608
  2. CUBICIN [Concomitant]
     Active Substance: DAPTOMYCIN
     Indication: PRODUCT USED FOR UNKNOWN INDICATION
     Dosage: UNK UNK, UNKNOWN FREQ.
     Route: 065
     Dates: start: 20150525, end: 20150608
  3. AMBISOME [Suspect]
     Active Substance: AMPHOTERICIN B
     Indication: ZYGOMYCOSIS
     Dosage: 03 MG/KG, UNKNOWN FREQ.
     Route: 042
     Dates: start: 20150525, end: 20150605

REACTIONS (4)
  - Rash [Fatal]
  - Pruritus [Fatal]
  - Oedema [Fatal]
  - Tachycardia [Fatal]

NARRATIVE: CASE EVENT DATE: 20150605
